FAERS Safety Report 21630004 (Version 1)
Quarter: 2022Q4

REPORT INFORMATION
  Report Type: Spontaneous
  Country: IE (occurrence: IE)
  Receive Date: 20221122
  Receipt Date: 20221122
  Transmission Date: 20230113
  Serious: Yes (Life-Threatening, Other)
  Sender: FDA-Public Use
  Company Number: IE-ALKABELLO A/S-2022AA003824

PATIENT

DRUGS (10)
  1. CIPROFLOXACIN [Suspect]
     Active Substance: CIPROFLOXACIN
     Indication: Product used for unknown indication
  2. AMLODIPINE [Concomitant]
     Active Substance: AMLODIPINE BESYLATE
  3. ESOMEPRAZOLE [Concomitant]
     Active Substance: ESOMEPRAZOLE
  4. ATORVASTATIN [Concomitant]
     Active Substance: ATORVASTATIN
  5. TOLTERODINE [Concomitant]
     Active Substance: TOLTERODINE
  6. FERROUS FUMARATE [Concomitant]
     Active Substance: FERROUS FUMARATE
  7. HYDROCHLOROTHIAZIDE\LISINOPRIL [Concomitant]
     Active Substance: HYDROCHLOROTHIAZIDE\LISINOPRIL
  8. DICLOFENAC [Concomitant]
     Active Substance: DICLOFENAC
  9. TRAMADOL [Concomitant]
     Active Substance: TRAMADOL
  10. CODEINE [Concomitant]
     Active Substance: CODEINE

REACTIONS (6)
  - Toxic epidermal necrolysis [Unknown]
  - Respiratory failure [Unknown]
  - Pneumonia aspiration [Unknown]
  - Pancytopenia [Unknown]
  - Dysphagia [Unknown]
  - Upper gastrointestinal haemorrhage [Unknown]
